FAERS Safety Report 20097225 (Version 1)
Quarter: 2021Q4

REPORT INFORMATION
  Report Type: Spontaneous
  Country: US (occurrence: None)
  Receive Date: 20211120
  Receipt Date: 20211120
  Transmission Date: 20220304
  Serious: Yes (Other)
  Sender: FDA-Public Use
  Company Number: None

PATIENT
  Age: 36 Month
  Sex: Female
  Weight: 85.5 kg

DRUGS (1)
  1. METHYLPHENIDATE [Suspect]
     Active Substance: METHYLPHENIDATE
     Dosage: OTHER QUANTITY : 30 TABLET(S);?
     Route: 048
     Dates: start: 20211118

REACTIONS (5)
  - Mental status changes [None]
  - Depression [None]
  - Attention deficit hyperactivity disorder [None]
  - Anxiety [None]
  - Obsessive-compulsive disorder [None]

NARRATIVE: CASE EVENT DATE: 20211118
